FAERS Safety Report 9366889 (Version 2)
Quarter: 2013Q3

REPORT INFORMATION
  Report Type: Spontaneous
  Country: CA (occurrence: None)
  Receive Date: 20130621
  Receipt Date: 20130719
  Transmission Date: 20140515
  Serious: Yes (Life-Threatening)
  Sender: FDA-Public Use
  Company Number: CC400183220

PATIENT
  Age: 15 Year
  Sex: Male
  Weight: 113.2 kg

DRUGS (5)
  1. HEPARIN [Suspect]
     Indication: ANTICOAGULANT THERAPY
     Dosage: SEE NARRATIVE
     Route: 042
     Dates: start: 20130607, end: 20130610
  2. ASPIRIN 81MG [Concomitant]
  3. FUROSEMIDE 20MG [Concomitant]
  4. NAPROXEN 250MG 16028/0144 [Concomitant]
  5. ACETAMINOPHEN 650MG ER 544 [Concomitant]

REACTIONS (2)
  - Drug effect decreased [None]
  - Activated partial thromboplastin time prolonged [None]
